FAERS Safety Report 8182913 (Version 3)
Quarter: 2013Q1

REPORT INFORMATION
  Report Type: Spontaneous
  Country: US (occurrence: None)
  Receive Date: 20111005
  Receipt Date: 20121102
  Transmission Date: 20140127
  Serious: Yes (Hospitalization, Other)
  Sender: FDA-Public Use
  Company Number: JPI-P-017218

PATIENT
  Age: 57 Year
  Sex: Female

DRUGS (22)
  1. XYREM [Suspect]
     Indication: NARCOLEPSY
     Dosage: 3 GM (1.5 GM, 2 IN 1 D), ORAL
     Route: 048
     Dates: start: 20110211
  2. XYREM [Suspect]
     Indication: SOMNOLENCE
     Dosage: 3 GM (1.5 GM, 2 IN 1 D), ORAL
     Route: 048
     Dates: start: 20110211
  3. XYREM [Suspect]
     Indication: SLEEP DISORDER
     Dosage: 3 GM (1.5 GM, 2 IN 1 D), ORAL
     Route: 048
     Dates: start: 20110211
  4. SULFAMETHOXAZOLE\TRIMETHOPRIM [Suspect]
     Indication: WOUND INFECTION
     Route: 048
     Dates: start: 2012, end: 2012
  5. PREGABALIN [Concomitant]
  6. DULOXETINE HYDROCHLORIDE [Concomitant]
  7. VALSARTAN [Concomitant]
  8. AMPHETAMINE ASPARTATE; AMPHETAMINE SULFATE; DEXTROAMPHETAMINE SACCHARATE; DEXTROAMPHETAMINE SULFATE [Concomitant]
  9. FUROSEMIDE [Concomitant]
  10. HYDROCHLOROTHIAZIDE [Concomitant]
  11. POTASSIUM CHLORIDE ER [Concomitant]
  12. METOPROLOL [Concomitant]
  13. FENTANYL [Concomitant]
  14. ACETAMINOPHEN / OXYCODONE [Concomitant]
  15. CALCIUM [Concomitant]
  16. MAGNESIUM [Concomitant]
  17. MULTIVITAMIN FOR WOMEN [Concomitant]
  18. SUPER B COMPLEX WITH VITAMIN C AND FOLIC ACID [Concomitant]
  19. STOOL SOFTENER [Concomitant]
  20. BISACODYL [Concomitant]
  21. FLUTICASONE [Concomitant]
  22. ALENDRONATE SODIUM [Concomitant]

REACTIONS (9)
  - Knee arthroplasty [None]
  - Wound infection [None]
  - Hypersensitivity [None]
  - Blood pressure increased [None]
  - Local swelling [None]
  - Impaired healing [None]
  - Depressed level of consciousness [None]
  - Fluid retention [None]
  - Gastrointestinal sounds abnormal [None]
